FAERS Safety Report 23982595 (Version 3)
Quarter: 2025Q3

REPORT INFORMATION
  Report Type: Report from Study
  Country: CA (occurrence: CA)
  Receive Date: 20240617
  Receipt Date: 20250919
  Transmission Date: 20251020
  Serious: Yes (Other)
  Sender: TAKEDA
  Company Number: CA-TAKEDA-2024TUS058229

PATIENT
  Sex: Male

DRUGS (4)
  1. VEDOLIZUMAB [Suspect]
     Active Substance: VEDOLIZUMAB
     Indication: Colitis ulcerative
  2. VEDOLIZUMAB [Suspect]
     Active Substance: VEDOLIZUMAB
  3. METHOTREXATE [Concomitant]
     Active Substance: METHOTREXATE
  4. DULOXETINE [Concomitant]
     Active Substance: DULOXETINE

REACTIONS (4)
  - Clostridium difficile infection [Unknown]
  - Hyperhidrosis [Unknown]
  - Influenza [Unknown]
  - Pyrexia [Unknown]
